FAERS Safety Report 8392457-9 (Version None)
Quarter: 2012Q2

REPORT INFORMATION
  Report Type: 
  Country: None (occurrence: None)
  Receive Date: 20120529
  Receipt Date: 20120525
  Transmission Date: 20120825
  Serious: Yes (Death)
  Sender: FDA-Public Use
  Company Number: US-PFIZER INC-2012040878

PATIENT
  Sex: Male

DRUGS (1)
  1. RAPAMUNE [Suspect]
     Indication: HEPATIC NEOPLASM MALIGNANT
     Dosage: 1 MG, 3X/DAY
     Dates: start: 20120109, end: 20120215

REACTIONS (3)
  - HEPATIC NEOPLASM MALIGNANT [None]
  - DISEASE PROGRESSION [None]
  - DRUG INEFFECTIVE [None]
